FAERS Safety Report 8999312 (Version 1)
Quarter: 2013Q1

REPORT INFORMATION
  Report Type: Spontaneous
  Country: US (occurrence: US)
  Receive Date: 20130103
  Receipt Date: 20130103
  Transmission Date: 20140127
  Serious: Yes (Other)
  Sender: FDA-Public Use
  Company Number: US-PFIZER INC-2012332926

PATIENT
  Age: 52 Year
  Sex: Female
  Weight: 82 kg

DRUGS (1)
  1. LEVOXYL [Suspect]
     Indication: THYROID DISORDER
     Dosage: 1 DF, 1X/DAY
     Route: 048

REACTIONS (5)
  - Coeliac disease [Unknown]
  - Uterine disorder [Unknown]
  - Gallbladder disorder [Unknown]
  - Tremor [Unknown]
  - Insomnia [Unknown]
